FAERS Safety Report 21946848 (Version 2)
Quarter: 2023Q1

REPORT INFORMATION
  Report Type: Spontaneous
  Country: US (occurrence: US)
  Receive Date: 20230202
  Receipt Date: 20230208
  Transmission Date: 20230418
  Serious: Yes (Other)
  Sender: FDA-Public Use
  Company Number: US-PFIZER INC-202300049660

PATIENT
  Age: 73 Year
  Sex: Female

DRUGS (6)
  1. ACETYLCYSTEINE [Suspect]
     Active Substance: ACETYLCYSTEINE
     Indication: Tracheomalacia
     Dosage: UNK [10% ADMINISTERED VIA NEBULIZER]
  2. ACETYLCYSTEINE [Suspect]
     Active Substance: ACETYLCYSTEINE
     Indication: Respiratory disorder
  3. PREDNISONE [Concomitant]
     Active Substance: PREDNISONE
     Dosage: UNK
  4. ALBUTEROL SULFATE [Concomitant]
     Active Substance: ALBUTEROL SULFATE
     Dosage: UNK [ALBUTEROL INHALER]
  5. ALBUTEROL SULFATE [Concomitant]
     Active Substance: ALBUTEROL SULFATE
     Dosage: UNK [ALBUTEROL NEBULIZER]
  6. MUCILAX [PLANTAGO AFRA] [Concomitant]
     Dosage: UNK
     Route: 048

REACTIONS (5)
  - Product supply issue [Unknown]
  - Product dose omission issue [Unknown]
  - Tracheomalacia [Unknown]
  - Condition aggravated [Unknown]
  - Off label use [Unknown]
